FAERS Safety Report 11688615 (Version 2)
Quarter: 2015Q4

REPORT INFORMATION
  Report Type: Report from Study
  Country: NL (occurrence: NL)
  Receive Date: 20151102
  Receipt Date: 20151110
  Transmission Date: 20160304
  Serious: Yes (Life-Threatening)
  Sender: FDA-Public Use
  Company Number: NL-ROCHE-1652837

PATIENT
  Age: 71 Year

DRUGS (5)
  1. TENIPOSIDE. [Suspect]
     Active Substance: TENIPOSIDE
     Indication: PRODUCT USED FOR UNKNOWN INDICATION
     Dosage: LAST DOSE RECEIVED PRIOR TO SAE: 28/SEP/2015.
     Route: 065
     Dates: start: 20150927
  2. METHOTREXATE [Suspect]
     Active Substance: METHOTREXATE
     Indication: PRODUCT USED FOR UNKNOWN INDICATION
     Dosage: LAST DOSE RECEIVED PRIOR TO SAE:13/OCT/2015.
     Route: 065
     Dates: start: 20150926
  3. PREDNISOLONE. [Suspect]
     Active Substance: PREDNISOLONE
     Indication: PRODUCT USED FOR UNKNOWN INDICATION
     Dosage: LAST DOSE RECEIVED PRIOR TO SAE 30/SEP/2015
     Route: 065
     Dates: start: 20150925
  4. RITUXIMAB [Suspect]
     Active Substance: RITUXIMAB
     Indication: MALIGNANT LYMPHOID NEOPLASM
     Dosage: LAST DOSE RECEIVED PRIOR TO SAE: 12/OCT/2015
     Route: 042
     Dates: start: 20150925
  5. CARMUSTINE [Suspect]
     Active Substance: CARMUSTINE
     Indication: PRODUCT USED FOR UNKNOWN INDICATION
     Route: 065
     Dates: start: 20150929, end: 20150929

REACTIONS (1)
  - Gastrointestinal haemorrhage [Recovered/Resolved]

NARRATIVE: CASE EVENT DATE: 20151022
